FAERS Safety Report 6028492-5 (Version None)
Quarter: 2009Q1

REPORT INFORMATION
  Report Type: 
  Country: None (occurrence: None)
  Receive Date: 20090106
  Receipt Date: 20080115
  Transmission Date: 20090719
  Serious: Yes (Other)
  Sender: FDA-Public Use
  Company Number: GB-NOVOPROD-271249

PATIENT
  Sex: Female
  Weight: 53.515 kg

DRUGS (1)
  1. KLIOVANCE [Suspect]
     Indication: DRUG USE FOR UNKNOWN INDICATION

REACTIONS (2)
  - OVARIAN CANCER [None]
  - POLYP [None]
